FAERS Safety Report 7272779-5 (Version None)
Quarter: 2010Q4

REPORT INFORMATION
  Report Type: 
  Country: None (occurrence: None)
  Receive Date: 20101208
  Receipt Date: 20100721
  Transmission Date: 20110411
  Serious: Yes (Hospitalization)
  Sender: FDA-Public Use
  Company Number: 1000015151

PATIENT
  Age: 83 Year
  Sex: Male

DRUGS (9)
  1. NAMENDA (MEMANTINE HYDROCHLORIDE) (5 MILLIGRAM, TABLETS) [Suspect]
     Indication: DEMENTIA ALZHEIMER'S TYPE
     Dosage: 5 MG (5 MG, 1 IN 1 D), ORAL, 10 MG (5 MG, 2 IN 1 D), ORAL, 10 MG QAM, 5MG QHS, ORAL
     Route: 048
     Dates: start: 20090601, end: 20090601
  2. NAMENDA (MEMANTINE HYDROCHLORIDE) (5 MILLIGRAM, TABLETS) [Suspect]
     Indication: DEMENTIA ALZHEIMER'S TYPE
     Dosage: 5 MG (5 MG, 1 IN 1 D), ORAL, 10 MG (5 MG, 2 IN 1 D), ORAL, 10 MG QAM, 5MG QHS, ORAL
     Route: 048
     Dates: start: 20090601, end: 20090601
  3. NAMENDA (MEMANTINE HYDROCHLORIDE) (5 MILLIGRAM, TABLETS) [Suspect]
     Indication: DEMENTIA ALZHEIMER'S TYPE
     Dosage: 5 MG (5 MG, 1 IN 1 D), ORAL, 10 MG (5 MG, 2 IN 1 D), ORAL, 10 MG QAM, 5MG QHS, ORAL
     Route: 048
     Dates: start: 20090601, end: 20090601
  4. NAMENDA [Suspect]
     Indication: DEMENTIA ALZHEIMER'S TYPE
     Dosage: 20 MG (10 MG, 2 IN 1 D), ORAL
     Route: 048
     Dates: start: 20090601, end: 20100709
  5. HYZAAR [Suspect]
     Indication: HYPERTENSION
     Dosage: 100/12.5 MG (1 IN 1 D)
     Dates: end: 20100709
  6. SPIRONOLACTONE [Suspect]
     Indication: HYPERTENSION
     Dosage: 12.5 MG (12.5 MG, 1 IN 1 D), ORAL
     Route: 048
     Dates: end: 20100709
  7. NIACIN [Suspect]
     Indication: DEMENTIA ALZHEIMER'S TYPE
     Dates: start: 20091201, end: 20100701
  8. ARICEPT [Concomitant]
  9. AGGRENOX [Concomitant]

REACTIONS (2)
  - HEPATOTOXICITY [None]
  - RENAL FAILURE ACUTE [None]
